FAERS Safety Report 10882189 (Version 1)
Quarter: 2015Q1

REPORT INFORMATION
  Report Type: Spontaneous
  Country: FR (occurrence: FR)
  Receive Date: 20150303
  Receipt Date: 20150303
  Transmission Date: 20150721
  Serious: Yes (Hospitalization)
  Sender: FDA-Public Use
  Company Number: FR-ABBVIE-15P-056-1354295-00

PATIENT
  Age: 68 Year
  Sex: Male

DRUGS (2)
  1. KEPPRA [Suspect]
     Active Substance: LEVETIRACETAM
     Indication: EPILEPSY
     Dosage: THREE DOSAGE FORM
     Route: 048
     Dates: start: 20141219, end: 20150209
  2. DEPAKINE [Suspect]
     Active Substance: VALPROATE SODIUM
     Indication: EPILEPSY
     Dosage: 3 DOSAGE FORM
     Route: 048
     Dates: start: 2012, end: 201412

REACTIONS (4)
  - Cognitive disorder [Recovered/Resolved with Sequelae]
  - Dysphagia [Recovered/Resolved with Sequelae]
  - Parkinson^s disease [Recovered/Resolved with Sequelae]
  - Blepharospasm [Recovered/Resolved with Sequelae]

NARRATIVE: CASE EVENT DATE: 20141219
